FAERS Safety Report 20061020 (Version 1)
Quarter: 2021Q4

REPORT INFORMATION
  Report Type: Spontaneous
  Country: CA (occurrence: CA)
  Receive Date: 20211112
  Receipt Date: 20211112
  Transmission Date: 20220303
  Serious: Yes (Other)
  Sender: FDA-Public Use
  Company Number: CA-BAUSCH-BL-2021-036312

PATIENT
  Age: 61 Year
  Sex: Male

DRUGS (1)
  1. GLUMETZA [Suspect]
     Active Substance: METFORMIN HYDROCHLORIDE
     Indication: Diabetes mellitus
     Dosage: 1000 MG FOR 1 CO DIE
     Route: 048
     Dates: start: 20141029

REACTIONS (5)
  - Rectal haemorrhage [Unknown]
  - Intestinal transit time decreased [Unknown]
  - Haemorrhoids [Unknown]
  - Anorectal disorder [Unknown]
  - Product residue present [Unknown]
